FAERS Safety Report 5956828-X (Version None)
Quarter: 2008Q4

REPORT INFORMATION
  Report Type: 
  Country: None (occurrence: None)
  Receive Date: 20081114
  Receipt Date: 20081114
  Transmission Date: 20090506
  Serious: No
  Sender: FDA-Public Use
  Company Number: None

PATIENT
  Age: 17 Year
  Sex: Male
  Weight: 61.2356 kg

DRUGS (1)
  1. CLARAVIS [Suspect]
     Indication: ACNE
     Dosage: 40MG  CAPSULE ONE DAILY PO
     Route: 048
     Dates: start: 20080924, end: 20081031

REACTIONS (4)
  - CHROMATURIA [None]
  - HYPOPHAGIA [None]
  - MOOD ALTERED [None]
  - NERVOUSNESS [None]
